FAERS Safety Report 9240345 (Version 1)
Quarter: 2013Q2

REPORT INFORMATION
  Report Type: Spontaneous
  Country: US (occurrence: None)
  Receive Date: 20130418
  Receipt Date: 20130418
  Transmission Date: 20140414
  Serious: No
  Sender: FDA-Public Use
  Company Number: None

PATIENT
  Age: 59 Year
  Sex: Female
  Weight: 58.97 kg

DRUGS (2)
  1. ALLEGRA-D [Suspect]
     Indication: NASAL CONGESTION
     Dosage: 1 TABLET FOR 12, USED 1 PER DAY
     Dates: start: 20130401, end: 20130403
  2. ALLEGRA-D [Suspect]
     Indication: EYE PRURITUS
     Dosage: 1 TABLET FOR 12, USED 1 PER DAY
     Dates: start: 20130401, end: 20130403

REACTIONS (6)
  - Nausea [None]
  - Pain [None]
  - Pruritus [None]
  - Toothache [None]
  - Tongue disorder [None]
  - Feeling abnormal [None]
